FAERS Safety Report 5484413-5 (Version None)
Quarter: 2007Q4

REPORT INFORMATION
  Report Type: 
  Country: None (occurrence: None)
  Receive Date: 20071012
  Receipt Date: 20071008
  Transmission Date: 20080405
  Serious: Yes (Life-Threatening, Hospitalization)
  Sender: FDA-Public Use
  Company Number: DE-ABBOTT-07P-062-0420057-00

PATIENT
  Sex: Male
  Weight: 71 kg

DRUGS (3)
  1. HUMIRA [Suspect]
     Indication: ARTHRITIS
     Route: 058
     Dates: start: 20070705, end: 20070708
  2. HUMIRA [Suspect]
     Indication: PSORIATIC ARTHROPATHY
     Route: 058
  3. LEFLUNOMIDE [Concomitant]
     Indication: ARTHRITIS
     Route: 048
     Dates: start: 20060612, end: 20070707

REACTIONS (4)
  - C-REACTIVE PROTEIN INCREASED [None]
  - LEUKOCYTOSIS [None]
  - MALAISE [None]
  - URINARY TRACT INFECTION [None]
